FAERS Safety Report 5759763-5 (Version None)
Quarter: 2008Q2

REPORT INFORMATION
  Report Type: 
  Country: None (occurrence: None)
  Receive Date: 20080605
  Receipt Date: 20080603
  Transmission Date: 20081010
  Serious: Yes (Hospitalization)
  Sender: FDA-Public Use
  Company Number: B0429401A

PATIENT
  Age: 33 Year
  Sex: Female

DRUGS (6)
  1. FLOLAN [Suspect]
     Indication: CONGENITAL PULMONARY HYPERTENSION
     Route: 042
     Dates: start: 20010521, end: 20040811
  2. FLOLAN [Suspect]
     Route: 042
     Dates: start: 20040812
  3. SPIRONOLACTONE [Concomitant]
     Route: 048
  4. DIGOXIN [Concomitant]
     Route: 048
  5. SELBEX [Concomitant]
     Route: 048
  6. PREDONINE [Concomitant]
     Route: 048

REACTIONS (7)
  - CHEST PAIN [None]
  - COUGH [None]
  - HYPERTHYROIDISM [None]
  - HYPOTHYROIDISM [None]
  - PLEURISY [None]
  - PULMONARY HYPERTENSION [None]
  - UTERINE LEIOMYOMA [None]
